FAERS Safety Report 26088377 (Version 1)
Quarter: 2025Q4

REPORT INFORMATION
  Report Type: Spontaneous
  Country: CH (occurrence: CH)
  Receive Date: 20251125
  Receipt Date: 20251125
  Transmission Date: 20260117
  Serious: Yes (Other)
  Sender: ABBVIE
  Company Number: CH-ABBVIE-6542136

PATIENT
  Age: 42 Year
  Sex: Female

DRUGS (5)
  1. BOTOX [Suspect]
     Active Substance: ONABOTULINUMTOXINA
     Indication: Product used for unknown indication
     Dosage: TIME INTERVAL: AS NECESSARY
     Route: 065
     Dates: start: 202203, end: 202203
  2. BOTOX [Suspect]
     Active Substance: ONABOTULINUMTOXINA
     Indication: Product used for unknown indication
     Dosage: TIME INTERVAL: AS NECESSARY
     Route: 065
     Dates: start: 202206, end: 202206
  3. ATOGEPANT [Suspect]
     Active Substance: ATOGEPANT
     Indication: Product used for unknown indication
     Dosage: STRENGTH: 60 MG
     Route: 048
     Dates: start: 20250717, end: 20250812
  4. AIMOVIG [Suspect]
     Active Substance: ERENUMAB-AOOE
     Indication: Product used for unknown indication
     Route: 065
     Dates: start: 202303, end: 202402
  5. AIMOVIG [Suspect]
     Active Substance: ERENUMAB-AOOE
     Indication: Product used for unknown indication
     Route: 065
     Dates: start: 20240519, end: 20250617

REACTIONS (9)
  - Tachycardia [Recovering/Resolving]
  - Chest pain [Recovering/Resolving]
  - Therapeutic product effect incomplete [Unknown]
  - Palpitations [Unknown]
  - Raynaud^s phenomenon [Unknown]
  - Hypertension [Unknown]
  - Nausea [Unknown]
  - Constipation [Unknown]
  - Blood pressure increased [Recovering/Resolving]

NARRATIVE: CASE EVENT DATE: 20250808
